FAERS Safety Report 15704745 (Version 1)
Quarter: 2018Q4

REPORT INFORMATION
  Report Type: Report from Study
  Country: IT (occurrence: IT)
  Receive Date: 20181210
  Receipt Date: 20181210
  Transmission Date: 20190205
  Serious: Yes (Other)
  Sender: FDA-Public Use
  Company Number: IT-ROCHE-2225636

PATIENT

DRUGS (2)
  1. RITUXIMAB. [Suspect]
     Active Substance: RITUXIMAB
     Indication: AMYLOIDOSIS
     Dosage: DAY 1
     Route: 065
  2. BENDAMUSTINE [Suspect]
     Active Substance: BENDAMUSTINE
     Indication: AMYLOIDOSIS
     Dosage: 60-100 MG/M2, DAYS 1-2
     Route: 042

REACTIONS (8)
  - Cardiac failure [Unknown]
  - Cytopenia [Unknown]
  - Weight decreased [Unknown]
  - Renal failure [Unknown]
  - Intestinal perforation [Unknown]
  - Infection [Unknown]
  - Portal vein thrombosis [Unknown]
  - Rash [Unknown]
